APPROVED DRUG PRODUCT: CALCIPOTRIENE AND BETAMETHASONE DIPROPIONATE
Active Ingredient: BETAMETHASONE DIPROPIONATE; CALCIPOTRIENE
Strength: 0.064%;0.005%
Dosage Form/Route: AEROSOL, FOAM;TOPICAL
Application: A214688 | Product #001
Applicant: GLENMARK PHARMACEUTICALS LTD
Approved: Mar 21, 2023 | RLD: No | RS: No | Type: DISCN